FAERS Safety Report 5891563-8 (Version None)
Quarter: 2008Q3

REPORT INFORMATION
  Report Type: 
  Country: None (occurrence: None)
  Receive Date: 20080922
  Receipt Date: 20060320
  Transmission Date: 20090109
  Serious: Yes (Hospitalization)
  Sender: FDA-Public Use
  Company Number: IT-ROCHE-571233

PATIENT
  Sex: Female

DRUGS (2)
  1. PEGASYS [Suspect]
     Route: 065
     Dates: start: 20051109, end: 20060617
  2. RIBAVIRIN [Suspect]
     Route: 065
     Dates: start: 20051109, end: 20060617

REACTIONS (1)
  - SYNCOPE [None]
